FAERS Safety Report 9908151 (Version 1)
Quarter: 2014Q1

REPORT INFORMATION
  Report Type: Spontaneous
  Country: US (occurrence: None)
  Receive Date: 20140212
  Receipt Date: 20140212
  Transmission Date: 20141002
  Serious: Yes (Other)
  Sender: FDA-Public Use
  Company Number: None

PATIENT
  Age: 74 None
  Sex: Male

DRUGS (6)
  1. MEFLOQUINE [Suspect]
     Dosage: 1 PILL 1 PER WEEK
     Route: 048
     Dates: start: 20130702, end: 20130720
  2. CELEBREX [Concomitant]
  3. RAMIPRIL [Concomitant]
  4. PLAVIX [Concomitant]
  5. LIPITOR [Concomitant]
  6. ASPIRIN [Concomitant]

REACTIONS (1)
  - Rash [None]
